FAERS Safety Report 16902424 (Version 2)
Quarter: 2019Q4

REPORT INFORMATION
  Report Type: Spontaneous
  Country: IT (occurrence: IT)
  Receive Date: 20191010
  Receipt Date: 20191018
  Transmission Date: 20200122
  Serious: Yes (Hospitalization)
  Sender: FDA-Public Use
  Company Number: IT-TEVA-2019-IT-1117372

PATIENT
  Age: 73 Year
  Sex: Female

DRUGS (3)
  1. DESAMETASONE FOSFATO HOSPIRA 4 MG/ML SOLUZIONE INIETTABILE [Concomitant]
     Indication: SMALL CELL LUNG CANCER
     Dosage: 1 DF
     Route: 042
     Dates: start: 20190917, end: 20190917
  2. ONDANSETRON KABI 2 MG/ML, SOLUZIONE INIETTABILE [Concomitant]
     Indication: SMALL CELL LUNG CANCER
     Dosage: 8 MG
     Route: 042
     Dates: start: 20190917, end: 20190917
  3. ETOPOSIDE. [Suspect]
     Active Substance: ETOPOSIDE
     Indication: SMALL CELL LUNG CANCER EXTENSIVE STAGE
     Dosage: 74 MG
     Route: 042
     Dates: start: 20190917, end: 20190917

REACTIONS (4)
  - Tachycardia [Recovering/Resolving]
  - Respiratory failure [Recovering/Resolving]
  - Hypertension [Recovering/Resolving]
  - Bronchospasm [Recovering/Resolving]

NARRATIVE: CASE EVENT DATE: 20190917
